FAERS Safety Report 7472434-2 (Version None)
Quarter: 2011Q2

REPORT INFORMATION
  Report Type: 
  Country: None (occurrence: None)
  Receive Date: 20110511
  Receipt Date: 20110502
  Transmission Date: 20111010
  Serious: Yes (Death, Hospitalization)
  Sender: FDA-Public Use
  Company Number: FR-MPIJNJ-2011-00808

PATIENT

DRUGS (10)
  1. DEXAMETHASONE SODIUM POSPHATE [Suspect]
     Dosage: 20 MG, UNK
     Route: 048
     Dates: start: 20110114, end: 20110204
  2. KARDEGIC                           /00002703/ [Concomitant]
     Indication: PRODUCT USED FOR UNKNOWN INDICATION
     Dosage: 75 MG, UNK
     Route: 048
     Dates: start: 20100101
  3. LEVOTHYROXINE SODIUM [Concomitant]
     Indication: PRODUCT USED FOR UNKNOWN INDICATION
     Dosage: 75 MG, UNK
     Route: 048
     Dates: start: 20020101
  4. GLICLAZIDE [Concomitant]
     Indication: PRODUCT USED FOR UNKNOWN INDICATION
     Route: 048
  5. DUPHALAC [Concomitant]
  6. DELURSAN [Concomitant]
     Indication: HAEMOLYSIS
     Dosage: UNK
     Route: 048
     Dates: start: 20110201
  7. KEPPRA [Concomitant]
     Dosage: 500 MG, BID
  8. VELCADE [Suspect]
     Dosage: 2.4 MG, CYCLIC
     Route: 042
     Dates: start: 20110114, end: 20110127
  9. LACTULOSE [Concomitant]
     Indication: HAEMOLYSIS
     Dosage: UNK
     Route: 048
     Dates: start: 20110201
  10. COTAREG [Concomitant]
     Indication: HYPERTENSION
     Dosage: 80 MG, UNK
     Route: 048

REACTIONS (4)
  - EPILEPSY [None]
  - HEPATIC ENCEPHALOPATHY [None]
  - SEPSIS [None]
  - BREAST CANCER METASTATIC [None]
